FAERS Safety Report 17767084 (Version 5)
Quarter: 2020Q3

REPORT INFORMATION
  Report Type: Report from Study
  Country: CR (occurrence: CR)
  Receive Date: 20200511
  Receipt Date: 20200816
  Transmission Date: 20201102
  Serious: Yes (Other)
  Sender: FDA-Public Use
  Company Number: PHHY2017CR123850

PATIENT
  Age: 50 Year
  Sex: Male

DRUGS (5)
  1. FLU VACCINE VII [Suspect]
     Active Substance: INFLUENZA VIRUS VACCINE
     Indication: PRODUCT USED FOR UNKNOWN INDICATION
     Dosage: UNK
     Route: 065
  2. SCAPHO [Suspect]
     Active Substance: SECUKINUMAB
     Dosage: 150 MG, QMO
     Route: 058
     Dates: start: 20170816
  3. SCAPHO [Suspect]
     Active Substance: SECUKINUMAB
     Indication: ANKYLOSING SPONDYLITIS
     Dosage: UNK MG
     Route: 065
  4. SCAPHO [Suspect]
     Active Substance: SECUKINUMAB
     Dosage: UNK
     Route: 065
     Dates: start: 20170823
  5. LYRICA [Concomitant]
     Active Substance: PREGABALIN
     Indication: PRODUCT USED FOR UNKNOWN INDICATION
     Dosage: UNK
     Route: 065

REACTIONS (43)
  - Nausea [Recovered/Resolved]
  - Restlessness [Unknown]
  - Anxiety [Unknown]
  - Decreased immune responsiveness [Unknown]
  - Oropharyngeal pain [Recovering/Resolving]
  - Sciatica [Unknown]
  - Speech disorder [Recovering/Resolving]
  - Arthralgia [Recovering/Resolving]
  - Feeling abnormal [Unknown]
  - Pain in extremity [Unknown]
  - Diabetes mellitus [Unknown]
  - Fibrosis [Unknown]
  - Spondylitis [Unknown]
  - Gastrooesophageal reflux disease [Unknown]
  - Chronic gastritis [Unknown]
  - Gastritis [Unknown]
  - Respiratory tract infection [Not Recovered/Not Resolved]
  - Gastrointestinal disorder [Unknown]
  - Throat irritation [Recovering/Resolving]
  - Procedural pain [Unknown]
  - Hypertension [Unknown]
  - Post laminectomy syndrome [Unknown]
  - Hypoaesthesia oral [Unknown]
  - Spinal disorder [Not Recovered/Not Resolved]
  - Fear of injection [Not Recovered/Not Resolved]
  - Ankylosing spondylitis [Not Recovered/Not Resolved]
  - Dizziness postural [Unknown]
  - Stress [Unknown]
  - Headache [Unknown]
  - Nasopharyngitis [Unknown]
  - Sacroiliitis [Unknown]
  - Fatigue [Unknown]
  - Agitation [Unknown]
  - Neck pain [Recovering/Resolving]
  - Endocrine disorder [Unknown]
  - Gait disturbance [Unknown]
  - Polyp [Unknown]
  - Infection [Not Recovered/Not Resolved]
  - Suspected COVID-19 [Not Recovered/Not Resolved]
  - Back pain [Unknown]
  - Gastric disorder [Unknown]
  - Spinal pain [Not Recovered/Not Resolved]
  - Blood pressure systolic increased [Unknown]
